FAERS Safety Report 17034266 (Version 1)
Quarter: 2019Q4

REPORT INFORMATION
  Report Type: Spontaneous
  Country: JP (occurrence: JP)
  Receive Date: 20191114
  Receipt Date: 20191114
  Transmission Date: 20200122
  Serious: Yes (Other)
  Sender: FDA-Public Use
  Company Number: JP-AMGEN-JPNSP2019189034

PATIENT
  Age: 69 Year
  Sex: Female

DRUGS (2)
  1. RHEUMATREX [Concomitant]
     Active Substance: METHOTREXATE SODIUM
     Indication: RHEUMATOID ARTHRITIS
     Dosage: 6 MILLIGRAM, QWK
  2. ENBREL [Suspect]
     Active Substance: ETANERCEPT
     Indication: RHEUMATOID ARTHRITIS
     Dosage: 50 MILLIGRAM, QWK  (25MG TWICE)
     Route: 058
     Dates: start: 20190720, end: 20191105

REACTIONS (2)
  - Hepatic cancer [Not Recovered/Not Resolved]
  - Metastasis [Unknown]

NARRATIVE: CASE EVENT DATE: 20191102
